FAERS Safety Report 15311658 (Version 1)
Quarter: 2018Q4

REPORT INFORMATION
  Report Type: Spontaneous
  Country: US (occurrence: US)
  Receive Date: 20180823
  Receipt Date: 20180823
  Transmission Date: 20190204
  Serious: Yes (Other)
  Sender: FDA-Public Use
  Company Number: US-COLLEGIUM PHARMACEUTICAL, INC.-2018CGM00194

PATIENT
  Age: 59 Year
  Sex: Female
  Weight: 72.56 kg

DRUGS (14)
  1. PANTOPRAZOLE [Concomitant]
     Active Substance: PANTOPRAZOLE
     Dosage: 40 MG, 1X/DAY
  2. XTAMPZA ER [Suspect]
     Active Substance: OXYCODONE
     Indication: PAIN
     Dosage: 13.5 MG, 2X/DAY EVERY 12 HOURS
     Route: 048
     Dates: start: 20180523
  3. LOSARTAN POTASSIUM/HYDROCHLOROTHIAZIDE [Concomitant]
     Active Substance: HYDROCHLOROTHIAZIDE\LOSARTAN POTASSIUM
     Dosage: 1 DOSAGE UNITS, 1X/DAY
  4. GABAPENTIN. [Concomitant]
     Active Substance: GABAPENTIN
     Dosage: 800 MG, 3X/DAY
  5. PENNSAID [Suspect]
     Active Substance: DICLOFENAC SODIUM
     Indication: PAIN
     Dosage: 2 DOSAGE UNITS, 2X/DAY
     Route: 061
     Dates: start: 2017
  6. BENADRYL [Concomitant]
     Active Substance: DIPHENHYDRAMINE HYDROCHLORIDE
     Dosage: UNK, 1X/DAY  AT NIGHT
  7. BUPROPION. [Concomitant]
     Active Substance: BUPROPION
     Dosage: 100 MG, 2X/DAY
  8. TRAZODONE [Concomitant]
     Active Substance: TRAZODONE HYDROCHLORIDE
     Dosage: 100 MG, 1X/DAY AT NIGHT
     Route: 048
  9. ALEVE [Concomitant]
     Active Substance: NAPROXEN SODIUM
  10. ASPIRIN. [Concomitant]
     Active Substance: ASPIRIN
  11. UNSPECIFIED INHALER [Concomitant]
     Active Substance: UNSPECIFIED INGREDIENT
  12. OXYCODONE/ACETAMINOPHEN [Suspect]
     Active Substance: ACETAMINOPHEN\OXYCODONE HYDROCHLORIDE
     Indication: PAIN
     Dosage: UNK, AS NEEDED
     Dates: start: 20180523
  13. TRAZODONE [Concomitant]
     Active Substance: TRAZODONE HYDROCHLORIDE
     Dosage: 50 MG, AS NEEDED
  14. MELATONIN [Concomitant]
     Active Substance: MELATONIN
     Dosage: 20 MG, 1X/DAY

REACTIONS (10)
  - Feeling abnormal [Not Recovered/Not Resolved]
  - Inappropriate schedule of product administration [Not Recovered/Not Resolved]
  - Dyspnoea [Not Recovered/Not Resolved]
  - Pain [Not Recovered/Not Resolved]
  - Panic attack [Not Recovered/Not Resolved]
  - Dyspepsia [Not Recovered/Not Resolved]
  - Gait disturbance [Not Recovered/Not Resolved]
  - Drug ineffective [Not Recovered/Not Resolved]
  - Dizziness [Not Recovered/Not Resolved]
  - Headache [Not Recovered/Not Resolved]

NARRATIVE: CASE EVENT DATE: 201805
